FAERS Safety Report 15431487 (Version 5)
Quarter: 2020Q2

REPORT INFORMATION
  Report Type: Spontaneous
  Country: US (occurrence: US)
  Receive Date: 20180926
  Receipt Date: 20200529
  Transmission Date: 20200713
  Serious: Yes (Hospitalization, Other)
  Sender: FDA-Public Use
  Company Number: US-PFIZER INC-2018386038

PATIENT
  Age: 66 Year
  Sex: Male
  Weight: 91 kg

DRUGS (2)
  1. LYRICA [Suspect]
     Active Substance: PREGABALIN
     Indication: HYPOAESTHESIA
  2. LYRICA [Suspect]
     Active Substance: PREGABALIN
     Indication: PARAESTHESIA
     Dosage: 75 MG, 2X/DAY
     Route: 048

REACTIONS (6)
  - Blindness [Not Recovered/Not Resolved]
  - Renal disorder [Unknown]
  - Pruritus [Unknown]
  - Condition aggravated [Unknown]
  - Cytomegalovirus infection [Unknown]
  - Pain [Unknown]

NARRATIVE: CASE EVENT DATE: 201903
